FAERS Safety Report 14186803 (Version 17)
Quarter: 2024Q2

REPORT INFORMATION
  Report Type: Report from Study
  Country: JP (occurrence: JP)
  Receive Date: 20171114
  Receipt Date: 20240502
  Transmission Date: 20240716
  Serious: Yes (Life-Threatening, Hospitalization)
  Sender: FDA-Public Use
  Company Number: JP-ABBVIE-17K-087-2161617-00

PATIENT
  Age: 62 Year
  Sex: Male
  Weight: 68 kg

DRUGS (16)
  1. CARBIDOPA\LEVODOPA [Suspect]
     Active Substance: CARBIDOPA\LEVODOPA
     Indication: Parkinson^s disease
     Dosage: MD: 8.3 ML CD: 3.7 ML/HR ? 16 HRS ED: 1.0 ML/UNIT ? 3?STRENGTH: 50 MG
     Route: 050
     Dates: start: 20190828
  2. CARBIDOPA\LEVODOPA [Suspect]
     Active Substance: CARBIDOPA\LEVODOPA
     Dosage: MD:5.3 ML, ED:1 ML?LAST ADMIN DATE: 2017
     Route: 050
     Dates: start: 20170926
  3. CARBIDOPA\LEVODOPA [Suspect]
     Active Substance: CARBIDOPA\LEVODOPA
     Dosage: MD: 8.3 ML CD: 2.7 NL/HR ? 16 HRS ED: 1.0 ML/UNIT ? 2?STRENGTH: 50 MG
     Route: 050
     Dates: start: 20171113
  4. CARBIDOPA\LEVODOPA [Suspect]
     Active Substance: CARBIDOPA\LEVODOPA
     Dosage: MD: 8.3 ML CD: 2.9 ML/HR ? 16 HRS ED: 1.0 ML/UNIT ? 3
     Route: 050
     Dates: start: 2017, end: 20171108
  5. CARBIDOPA\ENTACAPONE\LEVODOPA [Concomitant]
     Active Substance: CARBIDOPA\ENTACAPONE\LEVODOPA
     Indication: Parkinson^s disease
     Dosage: 50 MILLIGRAM
     Route: 048
     Dates: start: 20190109, end: 20190605
  6. CARBIDOPA\ENTACAPONE\LEVODOPA [Concomitant]
     Active Substance: CARBIDOPA\ENTACAPONE\LEVODOPA
     Indication: Parkinson^s disease
     Dosage: 50 MILLIGRAM
     Route: 048
     Dates: start: 20190606
  7. LEVODOPA [Concomitant]
     Active Substance: LEVODOPA
     Indication: Parkinson^s disease
     Route: 050
  8. APOMORPHINE HYDROCHLORIDE [Concomitant]
     Active Substance: APOMORPHINE HYDROCHLORIDE
     Indication: Product used for unknown indication
     Route: 050
  9. ROTIGOTINE [Concomitant]
     Active Substance: ROTIGOTINE
     Indication: Parkinson^s disease
     Route: 062
  10. ZONISAMIDE AL [Concomitant]
     Indication: Parkinson^s disease
     Route: 048
  11. DISTIGMINE BROMIDE [Concomitant]
     Active Substance: DISTIGMINE BROMIDE
     Indication: Product used for unknown indication
     Route: 048
  12. TADALAFIL [Concomitant]
     Active Substance: TADALAFIL
     Indication: Product used for unknown indication
     Route: 048
  13. SENNOSIDES [Concomitant]
     Active Substance: SENNOSIDES
     Indication: Product used for unknown indication
     Route: 048
  14. LANSOPRAZOLE [Concomitant]
     Active Substance: LANSOPRAZOLE
     Indication: Product used for unknown indication
     Route: 048
  15. MAGNESIUM OXIDE [Concomitant]
     Active Substance: MAGNESIUM OXIDE
     Indication: Product used for unknown indication
     Route: 048
  16. LEVODOPA [Concomitant]
     Active Substance: LEVODOPA
     Indication: Parkinson^s disease
     Route: 042
     Dates: start: 20171108, end: 20171112

REACTIONS (12)
  - Intestinal ischaemia [Recovered/Resolved]
  - Device dislocation [Recovered/Resolved]
  - Stoma site haemorrhage [Recovered/Resolved]
  - Device issue [Recovered/Resolved]
  - Musculoskeletal stiffness [Unknown]
  - Complication associated with device [Unknown]
  - Device kink [Recovered/Resolved]
  - Stoma site pain [Unknown]
  - Speech disorder [Unknown]
  - Overdose [Unknown]
  - Parkinson^s disease [Unknown]
  - Malaise [Unknown]

NARRATIVE: CASE EVENT DATE: 20170927
